FAERS Safety Report 13940619 (Version 1)
Quarter: 2017Q3

REPORT INFORMATION
  Report Type: Spontaneous
  Country: US (occurrence: US)
  Receive Date: 20170906
  Receipt Date: 20170906
  Transmission Date: 20171127
  Serious: Yes (Other)
  Sender: FDA-Public Use
  Company Number: US-GLAXOSMITHKLINE-US2017GSK135070

PATIENT
  Age: 70 Year
  Sex: Female

DRUGS (3)
  1. SORIATANE [Suspect]
     Active Substance: ACITRETIN
     Indication: RASH
  2. SORIATANE [Suspect]
     Active Substance: ACITRETIN
     Indication: TRANSIENT ACANTHOLYTIC DERMATOSIS
     Dosage: UNK
     Dates: start: 201508
  3. SORIATANE [Suspect]
     Active Substance: ACITRETIN
     Indication: PRURITUS

REACTIONS (3)
  - Chemotherapy [Unknown]
  - Radiotherapy [Unknown]
  - Colon cancer [Unknown]

NARRATIVE: CASE EVENT DATE: 201704
